FAERS Safety Report 24717524 (Version 1)
Quarter: 2024Q4

REPORT INFORMATION
  Report Type: Spontaneous
  Country: BR (occurrence: BR)
  Receive Date: 20241210
  Receipt Date: 20241210
  Transmission Date: 20250115
  Serious: Yes (Disabling, Other)
  Sender: SANOFI AVENTIS
  Company Number: BR-SA-2024SA354473

PATIENT
  Age: 74 Year
  Sex: Male

DRUGS (7)
  1. LANTUS [Suspect]
     Active Substance: INSULIN GLARGINE
     Indication: Diabetes mellitus
     Dosage: 22 IU, QD
     Dates: start: 2012
  2. Cardizen [Concomitant]
     Indication: Hypertension
     Dosage: 30 MG, TID
     Route: 048
     Dates: start: 2004
  3. TEGRETOL [Concomitant]
     Active Substance: CARBAMAZEPINE
     Indication: Anticonvulsant drug level
     Dates: start: 2012
  4. QUETIPIN [Concomitant]
     Indication: Antipsychotic drug level
     Dosage: 100 MG  DOSE EVERY
     Route: 048
     Dates: start: 2012
  5. MEMANTINE HYDROCHLORIDE [Concomitant]
     Active Substance: MEMANTINE HYDROCHLORIDE
     Indication: Antipsychotic drug level
     Dosage: 1 DF, BID
     Route: 048
  6. TRAZODONE HYDROCHLORIDE [Concomitant]
     Active Substance: TRAZODONE HYDROCHLORIDE
     Indication: Antidepressant drug level
     Dosage: 50 MG, QD
     Route: 048
     Dates: start: 2012
  7. ALPRAZOLAM [Concomitant]
     Active Substance: ALPRAZOLAM
     Indication: Anxiolytic therapy
     Dosage: 2 MG HALF TABLET, QD
     Route: 048
     Dates: start: 2012

REACTIONS (6)
  - Dementia Alzheimer^s type [Not Recovered/Not Resolved]
  - Diabetic ketoacidosis [Unknown]
  - Hyperglycaemia [Recovered/Resolved]
  - Device issue [Unknown]
  - Incorrect dose administered by device [Unknown]
  - Mental disorder [Unknown]

NARRATIVE: CASE EVENT DATE: 20120201
